FAERS Safety Report 6413369-3 (Version None)
Quarter: 2009Q4

REPORT INFORMATION
  Report Type: 
  Country: None (occurrence: None)
  Receive Date: 20091026
  Receipt Date: 20091020
  Transmission Date: 20100525
  Serious: Yes (Death, Other)
  Sender: FDA-Public Use
  Company Number: CA-ROCHE-663385

PATIENT
  Age: 74 Year
  Sex: Male

DRUGS (14)
  1. ROCEPHIN [Suspect]
     Indication: DRUG USE FOR UNKNOWN INDICATION
     Route: 065
  2. ALLOPURINOL [Suspect]
     Indication: DRUG USE FOR UNKNOWN INDICATION
     Route: 065
  3. CEFAZOLIN [Suspect]
     Indication: DRUG USE FOR UNKNOWN INDICATION
     Route: 065
  4. CIPROFLOXACIN HYDROCHLORIDE [Suspect]
     Indication: DRUG USE FOR UNKNOWN INDICATION
     Route: 065
  5. VANCOMYCIN [Suspect]
     Indication: DRUG USE FOR UNKNOWN INDICATION
     Route: 065
  6. FUROSEMIDE [Concomitant]
     Route: 048
  7. DOXEPIN HYDROCHLORIDE [Concomitant]
  8. ASPIRIN [Concomitant]
  9. RANITIDINE [Concomitant]
  10. SLOW-K [Concomitant]
  11. HYDROXYUREA [Concomitant]
  12. SIMVASTATIN [Concomitant]
     Route: 065
  13. FERROUS FUMARATE [Concomitant]
  14. DOCUSATE SODIUM [Concomitant]

REACTIONS (10)
  - BLOOD CREATININE INCREASED [None]
  - CELLULITIS [None]
  - DEATH [None]
  - DERMATITIS EXFOLIATIVE [None]
  - PYREXIA [None]
  - RESPIRATORY DISTRESS [None]
  - SEPSIS [None]
  - STAPHYLOCOCCAL INFECTION [None]
  - STRIDOR [None]
  - TOXIC EPIDERMAL NECROLYSIS [None]
